FAERS Safety Report 9098012 (Version 2)
Quarter: 2013Q1

REPORT INFORMATION
  Report Type: Spontaneous
  Country: DE (occurrence: DE)
  Receive Date: 20130213
  Receipt Date: 20130228
  Transmission Date: 20140127
  Serious: Yes (Life-Threatening, Hospitalization, Other)
  Sender: FDA-Public Use
  Company Number: DE-ELI_LILLY_AND_COMPANY-DE201211000409

PATIENT
  Age: 53 Year
  Sex: Female
  Weight: 84.5 kg

DRUGS (12)
  1. EFIENT [Suspect]
     Indication: STENT PLACEMENT
     Dosage: 10 MG, QD
     Route: 048
     Dates: start: 20120808, end: 20121030
  2. ASS [Concomitant]
     Indication: THROMBOSIS PROPHYLAXIS
     Dosage: UNK
  3. FALITHROM [Concomitant]
     Indication: THROMBOSIS PROPHYLAXIS
     Dosage: UNK
  4. BELOC ZOK [Concomitant]
  5. VOCADO [Concomitant]
  6. BASAL-H-INSULIN [Concomitant]
  7. METFORMIN [Concomitant]
     Indication: DIABETES MELLITUS
     Dosage: 500 MG, QD
  8. TOREM [Concomitant]
  9. SIMVASTATIN [Concomitant]
  10. PANTOZOL [Concomitant]
  11. INSPRA [Concomitant]
  12. MIMPARA                            /01735301/ [Concomitant]

REACTIONS (2)
  - Haemorrhage intracranial [Recovered/Resolved]
  - Hemianopia [Not Recovered/Not Resolved]
